FAERS Safety Report 20782160 (Version 1)
Quarter: 2022Q2

REPORT INFORMATION
  Report Type: Spontaneous
  Country: US (occurrence: US)
  Receive Date: 20220504
  Receipt Date: 20220504
  Transmission Date: 20220720
  Serious: Yes (Death)
  Sender: FDA-Public Use
  Company Number: US-MERCK-87060125

PATIENT
  Age: 6 Year
  Sex: Female

DRUGS (6)
  1. COSMEGEN [Suspect]
     Active Substance: DACTINOMYCIN
     Indication: Nephroblastoma
     Dosage: 1800 MICROGRAM
     Route: 042
     Dates: start: 19870116, end: 19870116
  2. COSMEGEN [Suspect]
     Active Substance: DACTINOMYCIN
     Dosage: UNK
     Route: 042
     Dates: start: 19870206, end: 19870206
  3. VINCRISTINE [Suspect]
     Active Substance: VINCRISTINE
     Indication: Nephroblastoma
     Dosage: 1.5 MILLIEQUIVALENT PER SQUARE METRE
     Route: 042
     Dates: start: 19870123, end: 19870123
  4. VINCRISTINE [Suspect]
     Active Substance: VINCRISTINE
     Dosage: 1.5 MILLIGRAM/SQ. METER
     Route: 042
     Dates: start: 19870130, end: 19870130
  5. VINCRISTINE [Suspect]
     Active Substance: VINCRISTINE
     Dosage: UNK
     Route: 042
     Dates: start: 19870206, end: 19870206
  6. VINCRISTINE [Suspect]
     Active Substance: VINCRISTINE
     Dosage: UNK
     Route: 042
     Dates: start: 19870213, end: 19870213

REACTIONS (12)
  - Anuria [Fatal]
  - Dehydration [Fatal]
  - Septic shock [Fatal]
  - Shock [Fatal]
  - Disseminated intravascular coagulation [Fatal]
  - Hepatic failure [Fatal]
  - Renal failure [Fatal]
  - Anaemia [Fatal]
  - Thrombocytopenia [Fatal]
  - Vomiting [Fatal]
  - Nausea [Unknown]
  - Overdose [Unknown]

NARRATIVE: CASE EVENT DATE: 19870206
